FAERS Safety Report 8173433-8 (Version None)
Quarter: 2012Q1

REPORT INFORMATION
  Report Type: 
  Country: None (occurrence: None)
  Receive Date: 20120229
  Receipt Date: 20120224
  Transmission Date: 20120608
  Serious: No
  Sender: FDA-Public Use
  Company Number: US-PFIZER INC-2012051184

PATIENT
  Sex: Female

DRUGS (7)
  1. CARDURA [Suspect]
     Dosage: UNK
  2. SULFASALAZINE [Suspect]
     Dosage: UNK
  3. LEXAPRO [Suspect]
     Dosage: UNK
  4. LOTENSIN [Suspect]
     Dosage: UNK
  5. ZOLOFT [Suspect]
     Dosage: UNK
  6. AMOXICILLIN [Suspect]
     Dosage: UNK
  7. SYMBYAX [Suspect]
     Dosage: UNK

REACTIONS (1)
  - DRUG HYPERSENSITIVITY [None]
